FAERS Safety Report 8042314-2 (Version None)
Quarter: 2012Q1

REPORT INFORMATION
  Report Type: 
  Country: None (occurrence: None)
  Receive Date: 20120112
  Receipt Date: 20120111
  Transmission Date: 20120608
  Serious: Yes (Other)
  Sender: FDA-Public Use
  Company Number: NO-BAYER-2011-093309

PATIENT
  Age: 34 Year
  Sex: Female

DRUGS (2)
  1. MIRENA [Suspect]
     Dosage: UNK
     Dates: start: 20110928
  2. MIRENA [Suspect]
     Indication: MENORRHAGIA
     Dosage: UNK
     Dates: start: 20050101, end: 20110501

REACTIONS (6)
  - DEVICE DEPLOYMENT ISSUE [None]
  - UTERINE LEIOMYOMA [None]
  - COMPLICATION OF DEVICE REMOVAL [None]
  - MENORRHAGIA [None]
  - ANAEMIA [None]
  - COMPLICATION OF DEVICE INSERTION [None]
